FAERS Safety Report 6539516-0 (Version None)
Quarter: 2010Q1

REPORT INFORMATION
  Report Type: 
  Country: None (occurrence: None)
  Receive Date: 20100115
  Receipt Date: 20100111
  Transmission Date: 20100710
  Serious: Yes (Hospitalization)
  Sender: FDA-Public Use
  Company Number: A0839321A

PATIENT
  Age: 51 Year
  Sex: Male

DRUGS (1)
  1. AVANDARYL [Suspect]
     Route: 065
     Dates: end: 20071001

REACTIONS (2)
  - CARDIAC DISORDER [None]
  - MYOCARDIAL INFARCTION [None]
